FAERS Safety Report 8461376-1 (Version None)
Quarter: 2012Q2

REPORT INFORMATION
  Report Type: 
  Country: None (occurrence: None)
  Receive Date: 20120619
  Receipt Date: 20120619
  Transmission Date: 20120825
  Serious: No
  Sender: FDA-Public Use
  Company Number: None

PATIENT
  Sex: Female
  Weight: 54.4316 kg

DRUGS (1)
  1. ESCITALOPRAM [Suspect]
     Dosage: 1 1/2 TABLET QD ORAL
     Route: 048
     Dates: start: 20120401, end: 20120613

REACTIONS (7)
  - INITIAL INSOMNIA [None]
  - PRURITUS [None]
  - SLEEP DISORDER [None]
  - ASTHENIA [None]
  - MOOD ALTERED [None]
  - DISTURBANCE IN ATTENTION [None]
  - FATIGUE [None]
